FAERS Safety Report 15620957 (Version 1)
Quarter: 2018Q4

REPORT INFORMATION
  Report Type: Spontaneous
  Country: US (occurrence: US)
  Receive Date: 20181115
  Receipt Date: 20181115
  Transmission Date: 20190205
  Serious: No
  Sender: FDA-Public Use
  Company Number: US-SA-2018SA312842

PATIENT
  Age: 9 Year
  Sex: Male

DRUGS (1)
  1. DULCOGAS [Suspect]
     Active Substance: DIMETHICONE

REACTIONS (2)
  - Expired product administered [Unknown]
  - Abdominal pain upper [Unknown]
